FAERS Safety Report 7812801-8 (Version None)
Quarter: 2011Q4

REPORT INFORMATION
  Report Type: 
  Country: None (occurrence: None)
  Receive Date: 20111011
  Receipt Date: 20111003
  Transmission Date: 20120403
  Serious: Yes (Other)
  Sender: FDA-Public Use
  Company Number: 2011SP008317

PATIENT
  Age: 33 Year
  Sex: Male

DRUGS (2)
  1. PEG-INTRON [Suspect]
     Indication: HEPATITIS C
     Dosage: 100 MCG;QW;SC
     Route: 058
     Dates: start: 20101126
  2. METFORMIN HYDROCHLORIDE [Concomitant]

REACTIONS (6)
  - INSOMNIA [None]
  - PAIN [None]
  - DRUG INEFFECTIVE [None]
  - VIITH NERVE PARALYSIS [None]
  - EYE PAIN [None]
  - PYREXIA [None]
